APPROVED DRUG PRODUCT: ETOMIDATE
Active Ingredient: ETOMIDATE
Strength: 2MG/ML 
Dosage Form/Route: INJECTABLE;INJECTION
Application: A215028 | Product #001 | TE Code: AP
Applicant: CAPLIN STERILES LTD
Approved: Dec 18, 2020 | RLD: No | RS: No | Type: RX